FAERS Safety Report 10386463 (Version 5)
Quarter: 2015Q2

REPORT INFORMATION
  Report Type: Report from Study
  Country: US (occurrence: US)
  Receive Date: 20140815
  Receipt Date: 20150625
  Transmission Date: 20150821
  Serious: Yes (Hospitalization, Other)
  Sender: FDA-Public Use
  Company Number: US-ABBVIE-14K-163-1270491-00

PATIENT
  Age: 45 Year
  Sex: Female
  Weight: 77.18 kg

DRUGS (10)
  1. KRILL OIL [Concomitant]
     Active Substance: DIETARY SUPPLEMENT
     Indication: BLOOD CHOLESTEROL INCREASED
  2. HUMIRA [Suspect]
     Active Substance: ADALIMUMAB
     Indication: PSORIASIS
     Route: 065
     Dates: end: 2015
  3. HUMIRA [Suspect]
     Active Substance: ADALIMUMAB
     Indication: PSORIATIC ARTHROPATHY
     Route: 065
     Dates: start: 201502, end: 201504
  4. HUMIRA [Suspect]
     Active Substance: ADALIMUMAB
     Indication: PSORIATIC ARTHROPATHY
     Route: 058
  5. HUMIRA [Suspect]
     Active Substance: ADALIMUMAB
     Route: 058
     Dates: start: 20141012
  6. CLOBEX [Concomitant]
     Active Substance: CLOBETASOL PROPIONATE
     Indication: PSORIASIS
  7. HUMIRA [Suspect]
     Active Substance: ADALIMUMAB
     Indication: COLITIS ULCERATIVE
     Route: 058
     Dates: end: 20140904
  8. HUMIRA [Suspect]
     Active Substance: ADALIMUMAB
     Route: 058
     Dates: start: 201506
  9. HUMIRA [Suspect]
     Active Substance: ADALIMUMAB
     Indication: COLITIS ULCERATIVE
     Route: 065
     Dates: start: 201504, end: 201506
  10. HUMIRA [Suspect]
     Active Substance: ADALIMUMAB
     Indication: PSORIASIS
     Route: 058
     Dates: start: 201108

REACTIONS (26)
  - Incorrect dose administered [Unknown]
  - Device issue [Unknown]
  - Injection site pain [Unknown]
  - Device breakage [Recovered/Resolved]
  - Colitis [Not Recovered/Not Resolved]
  - Diarrhoea [Not Recovered/Not Resolved]
  - Injection site pain [Unknown]
  - Psoriatic arthropathy [Unknown]
  - Injection site nodule [Not Recovered/Not Resolved]
  - Dysuria [Not Recovered/Not Resolved]
  - Injection site papule [Recovered/Resolved]
  - Injection site bruising [Not Recovered/Not Resolved]
  - Blood pressure decreased [Recovered/Resolved]
  - Therapeutic response unexpected [Not Recovered/Not Resolved]
  - Rectal prolapse [Recovered/Resolved]
  - Injection site pain [Recovered/Resolved]
  - Venous injury [Unknown]
  - Heart rate increased [Not Recovered/Not Resolved]
  - Injection site induration [Unknown]
  - Wrong technique in drug usage process [Unknown]
  - Drug effect decreased [Unknown]
  - Device failure [Recovered/Resolved]
  - Injection site haemorrhage [Unknown]
  - Hypertension [Unknown]
  - Incorrect dose administered [Unknown]
  - Device issue [Unknown]

NARRATIVE: CASE EVENT DATE: 2011
